FAERS Safety Report 8216924 (Version 8)
Quarter: 2012Q4

REPORT INFORMATION
  Report Type: Report from Study
  Country: AU (occurrence: NZ)
  Receive Date: 20111101
  Receipt Date: 20121206
  Transmission Date: 20130627
  Serious: Yes (Hospitalization)
  Sender: FDA-Public Use
  Company Number: AU-JNJFOC-20111013147

PATIENT
  Age: 63 Year
  Sex: Male
  Weight: 84 kg

DRUGS (12)
  1. ABIRATERONE ACETATE [Suspect]
     Route: 048
  2. ABIRATERONE ACETATE [Suspect]
     Indication: PROSTATE CANCER METASTATIC
     Route: 048
     Dates: start: 20110928, end: 20111014
  3. PREDNISONE [Suspect]
     Indication: PROSTATE CANCER METASTATIC
     Route: 048
     Dates: start: 20110928
  4. PARACETAMOL [Concomitant]
     Indication: PAIN
     Route: 065
     Dates: start: 20110928, end: 20111031
  5. FENTANYL [Concomitant]
     Indication: PLATELET COUNT DECREASED
     Route: 065
     Dates: start: 20111026
  6. RANITIDINE [Concomitant]
     Indication: GASTROOESOPHAGEAL REFLUX DISEASE
     Route: 065
     Dates: start: 201110, end: 20111031
  7. DOMPERIDONE [Concomitant]
     Indication: PLATELET COUNT DECREASED
     Route: 065
     Dates: start: 20111026, end: 20111031
  8. ONDANSETRON [Concomitant]
     Indication: PLATELET COUNT DECREASED
     Route: 065
     Dates: start: 20111026, end: 20111031
  9. METOCLOPRAMIDE [Concomitant]
     Indication: PLATELET COUNT DECREASED
     Route: 065
     Dates: start: 20111026
  10. CYCLIZINE [Concomitant]
     Indication: PLATELET COUNT DECREASED
     Route: 065
     Dates: start: 20111026
  11. OMEPRAZOLE [Concomitant]
     Indication: PLATELET COUNT DECREASED
     Route: 065
     Dates: start: 20111026
  12. ALANASE [Concomitant]
     Indication: THROAT IRRITATION
     Route: 065
     Dates: start: 20111020, end: 20111031

REACTIONS (1)
  - Platelet count decreased [Unknown]
